FAERS Safety Report 6185116-4 (Version None)
Quarter: 2009Q2

REPORT INFORMATION
  Report Type: 
  Country: None (occurrence: None)
  Receive Date: 20090507
  Receipt Date: 20090424
  Transmission Date: 20091009
  Serious: Yes (Death, Life-Threatening, Other)
  Sender: FDA-Public Use
  Company Number: 2009AL002744

PATIENT
  Age: 66 Year
  Sex: Female

DRUGS (8)
  1. DICLOXACILLIN [Suspect]
     Indication: BACK PAIN
     Dosage: 75 MG; IM
     Route: 030
     Dates: start: 20090201, end: 20090301
  2. DIAMORPHINE [Concomitant]
  3. ORAMORPH SR [Concomitant]
  4. DIAZEPAM [Concomitant]
  5. LEVOMEPROMAZINE [Concomitant]
  6. LANSOPRAZOLE [Concomitant]
  7. FORTISIP [Concomitant]
  8. PARACETAMOL [Concomitant]

REACTIONS (1)
  - DUODENAL ULCER PERFORATION [None]
